FAERS Safety Report 17038699 (Version 1)
Quarter: 2019Q4

REPORT INFORMATION
  Report Type: Report from Study
  Country: DE (occurrence: DE)
  Receive Date: 20191115
  Receipt Date: 20191115
  Transmission Date: 20200122
  Serious: Yes (Other)
  Sender: FDA-Public Use
  Company Number: PHHY2016DE062270

PATIENT
  Age: 41 Year
  Sex: Female

DRUGS (2)
  1. GILENYA [Suspect]
     Active Substance: FINGOLIMOD HYDROCHLORIDE
     Indication: MULTIPLE SCLEROSIS
     Dosage: UNK, QD
     Route: 048
     Dates: start: 20141111, end: 20160719
  2. GILENYA [Suspect]
     Active Substance: FINGOLIMOD HYDROCHLORIDE
     Dosage: UNK, QD
     Route: 048
     Dates: start: 20160720

REACTIONS (12)
  - Gamma-glutamyltransferase increased [Recovered/Resolved]
  - Aspartate aminotransferase increased [Recovered/Resolved]
  - Alanine aminotransferase increased [Recovered/Resolved]
  - White blood cell count decreased [Unknown]
  - Road traffic accident [Unknown]
  - Blood cholesterol increased [Unknown]
  - Blood alkaline phosphatase increased [Unknown]
  - Nasopharyngitis [Unknown]
  - Alanine aminotransferase increased [Recovered/Resolved]
  - Lymphocyte count increased [Unknown]
  - Alanine aminotransferase increased [Unknown]
  - Foot fracture [Unknown]

NARRATIVE: CASE EVENT DATE: 20150901
